FAERS Safety Report 6897941-2 (Version None)
Quarter: 2010Q3

REPORT INFORMATION
  Report Type: 
  Country: None (occurrence: None)
  Receive Date: 20100802
  Receipt Date: 20070814
  Transmission Date: 20110219
  Serious: Yes (Other)
  Sender: FDA-Public Use
  Company Number: US-PFIZER INC-2007067041

PATIENT
  Sex: Male

DRUGS (1)
  1. LYRICA [Suspect]
     Dates: start: 20050101

REACTIONS (4)
  - DIZZINESS [None]
  - HYPOAESTHESIA ORAL [None]
  - SWOLLEN TONGUE [None]
  - VISUAL IMPAIRMENT [None]
